FAERS Safety Report 6208498-3 (Version None)
Quarter: 2009Q2

REPORT INFORMATION
  Report Type: 
  Country: None (occurrence: None)
  Receive Date: 20090522
  Receipt Date: 20090217
  Transmission Date: 20091009
  Serious: No
  Sender: FDA-Public Use
  Company Number: 8043206

PATIENT
  Age: 31 Year
  Sex: Female
  Weight: 54.5 kg

DRUGS (4)
  1. CIMZIA [Suspect]
     Indication: CROHN'S DISEASE
     Dosage: 400 MG SC
     Route: 058
     Dates: start: 20081111
  2. PREDNISONE [Concomitant]
  3. PROZAC [Concomitant]
  4. ZYRTEC [Concomitant]

REACTIONS (4)
  - COUGH [None]
  - MUSCULOSKELETAL PAIN [None]
  - NASAL CONGESTION [None]
  - PYREXIA [None]
